FAERS Safety Report 12574599 (Version 1)
Quarter: 2016Q3

REPORT INFORMATION
  Report Type: Spontaneous
  Country: US (occurrence: US)
  Receive Date: 20160720
  Receipt Date: 20160720
  Transmission Date: 20161109
  Serious: Yes (Other)
  Sender: FDA-Public Use
  Company Number: US-PURDUE PHARMA-USA-2016-0131096

PATIENT
  Age: 11 Year
  Sex: Male
  Weight: 20.86 kg

DRUGS (2)
  1. RITALIN [Concomitant]
     Active Substance: METHYLPHENIDATE HYDROCHLORIDE
     Indication: ATTENTION DEFICIT/HYPERACTIVITY DISORDER
     Dosage: 1.5 MG, AM
     Route: 048
  2. APTENSIO XR [Suspect]
     Active Substance: METHYLPHENIDATE HYDROCHLORIDE
     Indication: ATTENTION DEFICIT/HYPERACTIVITY DISORDER
     Dosage: 30 MG, DAILY
     Route: 048

REACTIONS (8)
  - Disturbance in attention [Unknown]
  - Emotional distress [Unknown]
  - Psychomotor hyperactivity [Unknown]
  - Psychotic disorder [Unknown]
  - Headache [Unknown]
  - Mood altered [Unknown]
  - Crying [Unknown]
  - Hallucination [Unknown]

NARRATIVE: CASE EVENT DATE: 20160514
